FAERS Safety Report 22634738 (Version 2)
Quarter: 2023Q2

REPORT INFORMATION
  Report Type: Spontaneous
  Country: ZA (occurrence: ZA)
  Receive Date: 20230623
  Receipt Date: 20230627
  Transmission Date: 20230722
  Serious: Yes (Other)
  Sender: FDA-Public Use
  Company Number: ZA-SANOFI-01657688

PATIENT
  Sex: Male

DRUGS (1)
  1. HYDROCHLOROTHIAZIDE\IRBESARTAN [Suspect]
     Active Substance: HYDROCHLOROTHIAZIDE\IRBESARTAN
     Indication: Hypertension
     Dosage: UNK
     Dates: start: 20230603, end: 20230613

REACTIONS (11)
  - Cardiovascular insufficiency [Unknown]
  - Breast pain [Unknown]
  - Insomnia [Unknown]
  - Herpes zoster [Unknown]
  - Pain [Unknown]
  - Peripheral coldness [Unknown]
  - Chest pain [Unknown]
  - Musculoskeletal pain [Unknown]
  - Vertigo [Unknown]
  - Rash [Unknown]
  - Drug ineffective [Unknown]

NARRATIVE: CASE EVENT DATE: 20230601
